FAERS Safety Report 10810177 (Version 3)
Quarter: 2015Q2

REPORT INFORMATION
  Report Type: Spontaneous
  Country: None (occurrence: None)
  Receive Date: 20150212
  Receipt Date: 20150504
  Transmission Date: 20150821
  Serious: No
  Sender: FDA-Public Use
  Company Number: 1713747-2015-99945

PATIENT
  Age: 38 Year
  Sex: Female
  Weight: 66 kg

DRUGS (26)
  1. 0.9% SODIUM CHLORIDE INJECTION, USP IN MINI-BAG PLUS CONTAINER [Suspect]
     Active Substance: SODIUM CHLORIDE
     Indication: CHRONIC KIDNEY DISEASE
     Dosage: HEMODIALYSIS
     Dates: start: 20121230
  2. EPOGEN [Concomitant]
     Active Substance: ERYTHROPOIETIN
  3. TRAZODONE [Concomitant]
     Active Substance: TRAZODONE HYDROCHLORIDE
  4. GABAPENTIN. [Concomitant]
     Active Substance: GABAPENTIN
  5. NEPHRO-CAPS [Concomitant]
  6. FRESENIUS 2008K DIALYSIS MACHINE [Concomitant]
  7. GRANUFLO [Concomitant]
     Active Substance: ACETIC ACID\SODIUM ACETATE
  8. TUMS [Concomitant]
     Active Substance: CALCIUM CARBONATE
  9. CALCIFEROL [Concomitant]
     Active Substance: ERGOCALCIFEROL
  10. LANTUS [Concomitant]
     Active Substance: INSULIN GLARGINE
  11. COREG [Concomitant]
     Active Substance: CARVEDILOL
  12. SODIUM BICARBONATE. [Concomitant]
     Active Substance: SODIUM BICARBONATE
  13. HUMALOG [Concomitant]
     Active Substance: INSULIN LISPRO
  14. LISINOPRIL. [Concomitant]
     Active Substance: LISINOPRIL
  15. NORVASC [Concomitant]
     Active Substance: AMLODIPINE BESYLATE
  16. 180NRE OPTIFLUX [Concomitant]
  17. NATURALYTE [Concomitant]
     Active Substance: ACETIC ACID\SODIUM ACETATE
  18. ZEMPLAR [Concomitant]
     Active Substance: PARICALCITOL
  19. LOVENOX [Concomitant]
     Active Substance: ENOXAPARIN SODIUM
  20. NEURONTIN [Concomitant]
     Active Substance: GABAPENTIN
  21. BABY ASPIRIN [Concomitant]
     Active Substance: ASPIRIN
  22. COUMADIN [Concomitant]
     Active Substance: WARFARIN SODIUM
  23. FMC BLOOD LINES [Concomitant]
  24. ZOLOFT [Concomitant]
     Active Substance: SERTRALINE HYDROCHLORIDE
  25. RENVELA [Concomitant]
     Active Substance: SEVELAMER CARBONATE
  26. NORMAL SALINE [Concomitant]
     Active Substance: SODIUM CHLORIDE

REACTIONS (6)
  - Feeling abnormal [None]
  - Blood pressure increased [None]
  - Tremor [None]
  - Unresponsive to stimuli [None]
  - Vomiting [None]
  - Blood glucose increased [None]

NARRATIVE: CASE EVENT DATE: 20121230
